FAERS Safety Report 5657474-8 (Version None)
Quarter: 2008Q1

REPORT INFORMATION
  Report Type: 
  Country: None (occurrence: None)
  Receive Date: 20080307
  Receipt Date: 20080307
  Transmission Date: 20080703
  Serious: Yes (Hospitalization)
  Sender: FDA-Public Use
  Company Number: None

PATIENT
  Age: 59 Year
  Sex: Female
  Weight: 55 kg

DRUGS (2)
  1. SEROQUEL [Suspect]
     Indication: DEMENTIA
     Dosage: 100MG QHS PRN PO
     Route: 048
  2. HALDOL [Suspect]
     Indication: DEMENTIA
     Dosage: 1MG TID PO
     Route: 048

REACTIONS (6)
  - EATING DISORDER [None]
  - HYPERHIDROSIS [None]
  - LETHARGY [None]
  - MOVEMENT DISORDER [None]
  - NEUROLEPTIC MALIGNANT SYNDROME [None]
  - URINARY TRACT INFECTION [None]
